FAERS Safety Report 8716163 (Version 2)
Quarter: 2012Q4

REPORT INFORMATION
  Report Type: 
  Country: US (occurrence: US)
  Receive Date: 20120809
  Receipt Date: 20120919
  Transmission Date: 20130627
  Serious: No
  Sender: FDA-Public Use
  Company Number: US-ASTRAZENECA-2012SE50796

PATIENT
  Age: 59 Year
  Sex: Female
  Weight: 52.1 kg

DRUGS (10)
  1. FASLODEX [Suspect]
     Indication: BREAST CANCER METASTATIC
     Route: 030
     Dates: start: 2011
  2. ZOMETA [Concomitant]
  3. CITALOPRAM [Concomitant]
  4. GABAPENTIN [Concomitant]
  5. PROVIGIL [Concomitant]
  6. FENTANYL [Concomitant]
  7. OXYCODONE [Concomitant]
  8. ALBUTEROL [Concomitant]
  9. SPIRIVA [Concomitant]
  10. CEREZYME [Concomitant]

REACTIONS (4)
  - Hypertrichosis [Not Recovered/Not Resolved]
  - Skin odour abnormal [Not Recovered/Not Resolved]
  - Disease progression [Unknown]
  - Injection site pain [Not Recovered/Not Resolved]
